FAERS Safety Report 4507409-6 (Version None)
Quarter: 2004Q4

REPORT INFORMATION
  Report Type: 
  Country: None (occurrence: None)
  Receive Date: 20041118
  Receipt Date: 20041105
  Transmission Date: 20050328
  Serious: Yes (Other)
  Sender: FDA-Public Use
  Company Number: 2004017473

PATIENT
  Age: 56 Year
  Sex: Female
  Weight: 77.1115 kg

DRUGS (4)
  1. ZYRTEC [Suspect]
     Indication: INFECTION
     Dosage: 10 MG (10 MG, 1 IN 1 D), ORAL
     Route: 048
     Dates: start: 20040309, end: 20040309
  2. NADOLOL [Concomitant]
  3. DYAZIDE [Concomitant]
  4. IRBESARTAN [Concomitant]

REACTIONS (5)
  - DIZZINESS [None]
  - FATIGUE [None]
  - HEART RATE DECREASED [None]
  - MEDICATION ERROR [None]
  - SEDATION [None]
